FAERS Safety Report 9740238 (Version 1)
Quarter: 2013Q4

REPORT INFORMATION
  Report Type: Spontaneous
  Country: US (occurrence: US)
  Receive Date: 20131209
  Receipt Date: 20131209
  Transmission Date: 20140711
  Serious: No
  Sender: FDA-Public Use
  Company Number: US-BIOGENIDEC-2013BI091612

PATIENT
  Age: 61 Year
  Sex: Female

DRUGS (22)
  1. TECFIDERA [Suspect]
     Indication: MULTIPLE SCLEROSIS
     Route: 048
     Dates: start: 201308
  2. TECFIDERA [Suspect]
     Indication: MULTIPLE SCLEROSIS
     Route: 048
     Dates: start: 201308
  3. ADVAIR [Concomitant]
  4. AMIODARONE HCL [Concomitant]
  5. CLONAZEPAM [Concomitant]
  6. CRESTOR [Concomitant]
  7. CYMBALTA [Concomitant]
  8. EXEMESTANE [Concomitant]
  9. FISH OIL [Concomitant]
  10. LASIX [Concomitant]
  11. LYRICA [Concomitant]
  12. METFORMIN [Concomitant]
  13. REGLAN [Concomitant]
  14. MORPHINE SULFATE [Concomitant]
  15. TIZANADINE [Concomitant]
  16. PRO AIR [Concomitant]
  17. KLOR CON [Concomitant]
  18. L METHLY B6 B12 2-3-35 [Concomitant]
  19. HYDROCODONE [Concomitant]
  20. ISOSORBIDE DINITRATE [Concomitant]
  21. METOCLOPRAMIDE HCL [Concomitant]
  22. THEOPHYLLINE ANHYDROUS [Concomitant]

REACTIONS (2)
  - Fall [Recovered/Resolved]
  - Diarrhoea [Recovered/Resolved]
